FAERS Safety Report 11319000 (Version 1)
Quarter: 2015Q3

REPORT INFORMATION
  Report Type: Spontaneous
  Country: US (occurrence: None)
  Receive Date: 20150727
  Receipt Date: 20150727
  Transmission Date: 20151125
  Serious: Yes (Hospitalization, Disabling, Other)
  Sender: FDA-Public Use
  Company Number: None

PATIENT
  Age: 36 Year
  Sex: Female
  Weight: 68.04 kg

DRUGS (3)
  1. LORTAB COLASE IBUPROFEN [Concomitant]
  2. PRE NATAL VITAMIN [Concomitant]
  3. MIRENA [Suspect]
     Active Substance: LEVONORGESTREL

REACTIONS (4)
  - Uterine perforation [None]
  - Bedridden [None]
  - Embedded device [None]
  - Impaired work ability [None]

NARRATIVE: CASE EVENT DATE: 20150723
